FAERS Safety Report 4447980-6 (Version None)
Quarter: 2004Q3

REPORT INFORMATION
  Report Type: 
  Country: None (occurrence: None)
  Receive Date: 20040813
  Receipt Date: 20030915
  Transmission Date: 20050211
  Serious: Yes (Other)
  Sender: FDA-Public Use
  Company Number: PHEH2003US06435

PATIENT
  Age: 75 Year
  Weight: 89.8122 kg

DRUGS (13)
  1. VISUDYNE [Suspect]
     Indication: MACULAR DEGENERATION
     Dosage: 6.3 ML DAILY IV
     Route: 042
     Dates: start: 20030619, end: 20030619
  2. CARUDURA [Concomitant]
  3. LASIX [Concomitant]
  4. LISINOPRIL [Concomitant]
  5. SYNTHROID [Concomitant]
  6. ASPIRIN [Concomitant]
  7. AEROBID [Concomitant]
  8. COMBIVENT [Concomitant]
  9. CARVEDILOL [Concomitant]
  10. SPIRONOLACTONE [Concomitant]
  11. VANCERIL [Concomitant]
  12. VANCENASE [Concomitant]
  13. TERAZOSIN HCL [Concomitant]

REACTIONS (7)
  - BURNS SECOND DEGREE [None]
  - DRY SKIN [None]
  - FACE OEDEMA [None]
  - HYPOAESTHESIA [None]
  - LOCALISED EXFOLIATION [None]
  - SKIN FISSURES [None]
  - SUNBURN [None]
